FAERS Safety Report 6650727-6 (Version None)
Quarter: 2010Q1

REPORT INFORMATION
  Report Type: 
  Country: None (occurrence: None)
  Receive Date: 20100325
  Receipt Date: 20100315
  Transmission Date: 20100710
  Serious: Yes (Other)
  Sender: FDA-Public Use
  Company Number: FR-MPIJNJ-2010-01718

PATIENT

DRUGS (8)
  1. VELCADE [Suspect]
     Indication: MULTIPLE MYELOMA
     Dosage: 1.3 MG/M2, UNK
     Route: 042
     Dates: start: 20091208, end: 20100102
  2. MELPHALAN HYDROCHLORIDE [Concomitant]
     Dosage: 9 MG/M2, UNK
  3. CORTANCYL [Concomitant]
     Dosage: 60 MG/M2, UNK
  4. FEMARA [Concomitant]
  5. DEROXAT [Concomitant]
  6. SPECIAFOLDINE [Concomitant]
  7. VITAMIN B12                        /00056201/ [Concomitant]
  8. LOVENOX [Concomitant]

REACTIONS (5)
  - ATRIAL FIBRILLATION [None]
  - DYSPNOEA [None]
  - NEUROPATHY PERIPHERAL [None]
  - PARAESTHESIA [None]
  - THROMBOCYTOPENIA [None]
